FAERS Safety Report 6189698-8 (Version None)
Quarter: 2009Q2

REPORT INFORMATION
  Report Type: 
  Country: None (occurrence: None)
  Receive Date: 20090512
  Receipt Date: 20090512
  Transmission Date: 20091009
  Serious: Yes (Hospitalization)
  Sender: FDA-Public Use
  Company Number: None

PATIENT
  Age: 37 Year
  Sex: Female

DRUGS (1)
  1. GEODON [Suspect]
     Dosage: 120MG PM PO
     Route: 048

REACTIONS (3)
  - DYSPNOEA [None]
  - HEART RATE INCREASED [None]
  - SWOLLEN TONGUE [None]
